FAERS Safety Report 5595834-4 (Version None)
Quarter: 2008Q1

REPORT INFORMATION
  Report Type: 
  Country: None (occurrence: None)
  Receive Date: 20080118
  Receipt Date: 20080111
  Transmission Date: 20080703
  Serious: Yes (Hospitalization)
  Sender: FDA-Public Use
  Company Number: US-JNJFOC-20080103004

PATIENT
  Age: 21 Year
  Sex: Female
  Weight: 136.99 kg

DRUGS (5)
  1. RISPERDAL CONSTA [Suspect]
     Indication: BORDERLINE PERSONALITY DISORDER
     Route: 030
  2. CYMBALTA [Concomitant]
  3. SEROQUEL [Concomitant]
     Indication: BORDERLINE PERSONALITY DISORDER
  4. METFORMIN HCL [Concomitant]
     Indication: DIABETES MELLITUS
  5. PREVACID [Concomitant]

REACTIONS (1)
  - HOSPITALISATION [None]
